FAERS Safety Report 18372821 (Version 3)
Quarter: 2020Q4

REPORT INFORMATION
  Report Type: Spontaneous
  Country: RU (occurrence: RU)
  Receive Date: 20201012
  Receipt Date: 20201210
  Transmission Date: 20210114
  Serious: Yes (Other)
  Sender: FDA-Public Use
  Company Number: RU-PFIZER INC-2020248133

PATIENT
  Age: 40 Year
  Sex: Male
  Weight: 151 kg

DRUGS (8)
  1. ENOXAPARIN SODIUM. [Concomitant]
     Active Substance: ENOXAPARIN SODIUM
     Indication: COVID-19
     Dosage: UNK
  2. HYDROXYCHLOROQUINE [Concomitant]
     Active Substance: HYDROXYCHLOROQUINE
     Indication: COVID-19
     Dosage: 400 MG, 2X/DAY
     Dates: start: 20200524, end: 20200524
  3. ENALAPRIL [Concomitant]
     Active Substance: ENALAPRIL
     Indication: COVID-19
     Dosage: UNK
  4. TOFACITINIB CITRATE [Suspect]
     Active Substance: TOFACITINIB CITRATE
     Indication: COVID-19
     Dosage: 10 MG, 2X/DAY (BID)
     Route: 048
     Dates: start: 20200527, end: 20200530
  5. HYDROXYCHLOROQUINE [Concomitant]
     Active Substance: HYDROXYCHLOROQUINE
     Dosage: 200 MG, 2X/DAY
     Dates: start: 20200525, end: 20200528
  6. CHLOROQUINE. [Concomitant]
     Active Substance: CHLOROQUINE
     Indication: COVID-19
     Dosage: 400 MG, 2X/DAY
     Dates: start: 20200524, end: 20200524
  7. LEVOFLOXACIN. [Concomitant]
     Active Substance: LEVOFLOXACIN
     Indication: COVID-19
     Dosage: 1000 MG, DAILY
     Dates: start: 20200524, end: 20200531
  8. CHLOROQUINE. [Concomitant]
     Active Substance: CHLOROQUINE
     Dosage: 200 MG, 2X/DAY
     Dates: start: 20200525, end: 20200528

REACTIONS (3)
  - Off label use [Recovered/Resolved]
  - Product use in unapproved indication [Recovered/Resolved]
  - Drug-induced liver injury [Recovering/Resolving]

NARRATIVE: CASE EVENT DATE: 20200527
